FAERS Safety Report 24583703 (Version 2)
Quarter: 2024Q4

REPORT INFORMATION
  Report Type: Report from Study
  Country: AU (occurrence: AU)
  Receive Date: 20241106
  Receipt Date: 20241226
  Transmission Date: 20250115
  Serious: No
  Sender: TAKEDA
  Company Number: AU-TAKEDA-2024TUS104230

PATIENT
  Age: 76 Year
  Sex: Male

DRUGS (2)
  1. VEDOLIZUMAB [Suspect]
     Active Substance: VEDOLIZUMAB
     Indication: Crohn^s disease
     Dosage: 300 MILLIGRAM
  2. VEDOLIZUMAB [Suspect]
     Active Substance: VEDOLIZUMAB
     Dosage: 300 MILLIGRAM

REACTIONS (2)
  - Inappropriate schedule of product administration [Recovered/Resolved]
  - Pharyngitis [Recovering/Resolving]

NARRATIVE: CASE EVENT DATE: 20241101
